FAERS Safety Report 9993327 (Version 1)
Quarter: 2014Q1

REPORT INFORMATION
  Report Type: Report from Study
  Country: BR (occurrence: BR)
  Receive Date: 20140310
  Receipt Date: 20140310
  Transmission Date: 20141002
  Serious: Yes (Hospitalization, Other)
  Sender: FDA-Public Use
  Company Number: PHHY2014BR028550

PATIENT
  Age: 86 Year
  Sex: Female
  Weight: 57 kg

DRUGS (6)
  1. ACLASTA [Suspect]
     Indication: OSTEOPOROSIS
     Dosage: UNK, ONCE PER YEAR
     Route: 042
     Dates: start: 2013
  2. EXELON [Concomitant]
     Indication: DEMENTIA ALZHEIMER^S TYPE
     Dosage: 3 DF, DAILY
     Dates: start: 2013
  3. CALCIUM [Concomitant]
     Dosage: UNK
  4. VENLAFAXINE [Concomitant]
     Indication: DEPRESSION
     Dosage: 1 DF, DAILY
     Dates: start: 2013
  5. SIMVASTATIN [Concomitant]
     Indication: BLOOD CHOLESTEROL ABNORMAL
     Dosage: 1 DF, DAILY (10 MG)
  6. DEPURA [Concomitant]
     Indication: OSTEOPOROSIS
     Dosage: 70 DROPS PER WEEK

REACTIONS (2)
  - Cerebrovascular accident [Not Recovered/Not Resolved]
  - Carotid artery occlusion [Not Recovered/Not Resolved]
